FAERS Safety Report 8423578-X (Version None)
Quarter: 2012Q2

REPORT INFORMATION
  Report Type: 
  Country: None (occurrence: None)
  Receive Date: 20120608
  Receipt Date: 20120531
  Transmission Date: 20120825
  Serious: Yes (Hospitalization, Disabling)
  Sender: FDA-Public Use
  Company Number: US-B.I. PHARMACEUTICALS,INC./RIDGEFIELD-2012-BP-12758BP

PATIENT
  Sex: Female

DRUGS (3)
  1. PLAVIX [Concomitant]
     Indication: STARING
     Dosage: 75 MG
     Route: 048
     Dates: start: 20070101
  2. EFFEXOR [Concomitant]
     Indication: DEPRESSION
     Dates: start: 20070101
  3. MIRAPEX [Suspect]
     Indication: RESTLESS LEGS SYNDROME
     Dosage: 2 MG
     Route: 048
     Dates: start: 20070101

REACTIONS (5)
  - RETINAL ARTERY OCCLUSION [None]
  - INCORRECT DOSE ADMINISTERED [None]
  - BLINDNESS [None]
  - CORNEAL DEPOSITS [None]
  - EYE INFECTION TOXOPLASMAL [None]
